FAERS Safety Report 11494377 (Version 1)
Quarter: 2015Q3

REPORT INFORMATION
  Report Type: Spontaneous
  Country: US (occurrence: US)
  Receive Date: 20150911
  Receipt Date: 20150911
  Transmission Date: 20151125
  Serious: No
  Sender: FDA-Public Use
  Company Number: US-ROCHE-777468

PATIENT
  Age: 54 Year
  Sex: Male

DRUGS (5)
  1. COPEGUS [Suspect]
     Active Substance: RIBAVIRIN
     Indication: HEPATITIS C
     Dosage: DIVIDED DOSES
     Route: 048
  2. PEGASYS [Suspect]
     Active Substance: PEGINTERFERON ALFA-2A
     Indication: HEPATITIS C
     Route: 058
  3. METFORMIN [Concomitant]
     Active Substance: METFORMIN HYDROCHLORIDE
  4. ACTOS [Concomitant]
     Active Substance: PIOGLITAZONE HYDROCHLORIDE
  5. BENICAR [Concomitant]
     Active Substance: OLMESARTAN MEDOXOMIL

REACTIONS (8)
  - Rash pruritic [Unknown]
  - Ageusia [Unknown]
  - Mood swings [Not Recovered/Not Resolved]
  - Disorientation [Not Recovered/Not Resolved]
  - Pain [Recovered/Resolved]
  - Amnesia [Unknown]
  - Impatience [Not Recovered/Not Resolved]
  - Dizziness [Unknown]

NARRATIVE: CASE EVENT DATE: 201104
